FAERS Safety Report 8450120-X (Version None)
Quarter: 2012Q2

REPORT INFORMATION
  Report Type: 
  Country: None (occurrence: None)
  Receive Date: 20120620
  Receipt Date: 20120610
  Transmission Date: 20120825
  Serious: Yes (Other)
  Sender: FDA-Public Use
  Company Number: GB-TEVA-342507ISR

PATIENT
  Age: 31 Year
  Sex: Male
  Weight: 85 kg

DRUGS (6)
  1. TERBINAFINE HCL [Suspect]
     Dates: start: 20120502
  2. AMOROLFINE [Concomitant]
     Dates: start: 20120215, end: 20120509
  3. CETRABEN EMOLLIENT CREAM [Concomitant]
     Dates: start: 20120514
  4. METHADONE HCL [Concomitant]
     Dates: start: 20120216, end: 20120315
  5. METHADONE HCL [Concomitant]
     Dates: start: 20120220, end: 20120319
  6. PRAZIQUANTEL [Concomitant]
     Dates: start: 20120502, end: 20120503

REACTIONS (1)
  - PHOTOSENSITIVITY REACTION [None]
